FAERS Safety Report 7939042 (Version 3)
Quarter: 2013Q4

REPORT INFORMATION
  Report Type: Spontaneous
  Country: US (occurrence: US)
  Receive Date: 20110510
  Receipt Date: 20131021
  Transmission Date: 20140711
  Serious: No
  Sender: FDA-Public Use
  Company Number: US-PFIZER INC-2011095894

PATIENT
  Age: 11 Year
  Sex: Male

DRUGS (1)
  1. MENINGOCOCCAL VACCINE [Suspect]
     Dosage: UNK
     Dates: start: 20110412

REACTIONS (1)
  - Drug hypersensitivity [Unknown]
